FAERS Safety Report 5582877-X (Version None)
Quarter: 2007Q4

REPORT INFORMATION
  Report Type: 
  Country: None (occurrence: None)
  Receive Date: 20071231
  Receipt Date: 20071225
  Transmission Date: 20080405
  Serious: Yes (Hospitalization, Other)
  Sender: FDA-Public Use
  Company Number: 2007SP021192

PATIENT
  Age: 60 Year
  Sex: Male

DRUGS (4)
  1. PEG-INTRON [Suspect]
     Indication: HEPATITIS C
     Dosage: 100 MCG;QW;SC
     Route: 058
     Dates: start: 20060101
  2. REBETOL [Suspect]
     Indication: HEPATITIS C
     Dosage: ;PO : 800 MG;QD;PO
     Route: 048
     Dates: start: 20060101
  3. INTRON A [Suspect]
     Indication: HEPATITIS C
     Dosage: 10 MIU;IM
     Route: 030
  4. STRONGER NEO MINOPHAGEN C [Concomitant]

REACTIONS (7)
  - ASCITES [None]
  - DISEASE PROGRESSION [None]
  - HEPATIC FUNCTION ABNORMAL [None]
  - MALAISE [None]
  - OEDEMA PERIPHERAL [None]
  - PLATELET COUNT DECREASED [None]
  - PLEURAL EFFUSION [None]
